FAERS Safety Report 24216616 (Version 4)
Quarter: 2025Q3

REPORT INFORMATION
  Report Type: Spontaneous
  Country: CA (occurrence: CA)
  Receive Date: 20240816
  Receipt Date: 20250709
  Transmission Date: 20251020
  Serious: Yes (Death, Life-Threatening, Hospitalization, Other)
  Sender: BOEHRINGER INGELHEIM
  Company Number: CA-BoehringerIngelheim-2021-BI-102184

PATIENT
  Age: 65 Year
  Sex: Male

DRUGS (18)
  1. SPIRIVA [Suspect]
     Active Substance: TIOTROPIUM BROMIDE MONOHYDRATE
     Indication: Product used for unknown indication
  2. SPIRIVA [Suspect]
     Active Substance: TIOTROPIUM BROMIDE MONOHYDRATE
     Dosage: 3 DOSAGE FORM
  3. SPIRIVA [Suspect]
     Active Substance: TIOTROPIUM BROMIDE MONOHYDRATE
  4. SPIRIVA [Suspect]
     Active Substance: TIOTROPIUM BROMIDE MONOHYDRATE
  5. SPIRIVA [Suspect]
     Active Substance: TIOTROPIUM BROMIDE MONOHYDRATE
  6. SPIRIVA [Suspect]
     Active Substance: TIOTROPIUM BROMIDE MONOHYDRATE
  7. SPIRIVA [Suspect]
     Active Substance: TIOTROPIUM BROMIDE MONOHYDRATE
  8. SPIRIVA [Suspect]
     Active Substance: TIOTROPIUM BROMIDE MONOHYDRATE
  9. FLOMAX [Suspect]
     Active Substance: TAMSULOSIN HYDROCHLORIDE
     Indication: Product used for unknown indication
  10. FLOMAX [Suspect]
     Active Substance: TAMSULOSIN HYDROCHLORIDE
  11. FLOMAX [Suspect]
     Active Substance: TAMSULOSIN HYDROCHLORIDE
  12. FLOMAX [Suspect]
     Active Substance: TAMSULOSIN HYDROCHLORIDE
  13. FLOMAX [Suspect]
     Active Substance: TAMSULOSIN HYDROCHLORIDE
     Dosage: UNIT DOSE: 1 DOSAGE FORM
  14. FLOMAX [Suspect]
     Active Substance: TAMSULOSIN HYDROCHLORIDE
  15. FLOMAX [Suspect]
     Active Substance: TAMSULOSIN HYDROCHLORIDE
  16. FLOMAX [Suspect]
     Active Substance: TAMSULOSIN HYDROCHLORIDE
  17. FLOMAX [Suspect]
     Active Substance: TAMSULOSIN HYDROCHLORIDE
  18. FLOMAX [Suspect]
     Active Substance: TAMSULOSIN HYDROCHLORIDE

REACTIONS (41)
  - Capillaritis [Fatal]
  - Death [Fatal]
  - Asthma [Unknown]
  - Condition aggravated [Unknown]
  - Conjunctivitis allergic [Unknown]
  - Dust allergy [Unknown]
  - Dyspnoea [Unknown]
  - Eosinophilic granulomatosis with polyangiitis [Unknown]
  - Anxiety [Unknown]
  - Arteriosclerosis [Unknown]
  - Arteriosclerosis coronary artery [Unknown]
  - Forced expiratory volume decreased [Unknown]
  - Full blood count abnormal [Unknown]
  - Haemoptysis [Unknown]
  - Hypothyroidism [Unknown]
  - Hypoxia [Unknown]
  - Loss of personal independence in daily activities [Unknown]
  - Lung disorder [Unknown]
  - Mite allergy [Unknown]
  - Mycotic allergy [Unknown]
  - Neuritis [Unknown]
  - Neurological symptom [Unknown]
  - Nodule [Unknown]
  - Normochromic normocytic anaemia [Unknown]
  - Obstructive airways disorder [Unknown]
  - Pain in extremity [Unknown]
  - Productive cough [Unknown]
  - Pulmonary alveolar haemorrhage [Unknown]
  - Pulmonary embolism [Unknown]
  - Pulmonary fibrosis [Unknown]
  - Pulmonary vasculitis [Unknown]
  - Respiratory symptom [Unknown]
  - Sleep disorder due to a general medical condition [Unknown]
  - Spirometry abnormal [Unknown]
  - Therapeutic product effect incomplete [Unknown]
  - Thrombosis [Unknown]
  - Total lung capacity abnormal [Unknown]
  - Vasculitis [Unknown]
  - Wheezing [Unknown]
  - Antineutrophil cytoplasmic antibody positive [Unknown]
  - Sleep disorder [Unknown]
